FAERS Safety Report 5566413-X (Version None)
Quarter: 2007Q4

REPORT INFORMATION
  Report Type: 
  Country: None (occurrence: None)
  Receive Date: 20071217
  Receipt Date: 20071217
  Transmission Date: 20080405
  Serious: Yes (Hospitalization)
  Sender: FDA-Public Use
  Company Number: None

PATIENT
  Sex: Male
  Weight: 108 kg

DRUGS (4)
  1. ZOMETA [Suspect]
     Dosage: 4 MG
  2. VITAMIN D [Suspect]
     Dosage: 400 IU
  3. BACTRIM [Concomitant]
  4. NEURONTIN [Concomitant]

REACTIONS (2)
  - METASTASES TO BONE [None]
  - RENAL FAILURE [None]
